FAERS Safety Report 7519754-0 (Version None)
Quarter: 2011Q2

REPORT INFORMATION
  Report Type: 
  Country: None (occurrence: None)
  Receive Date: 20110602
  Receipt Date: 20110525
  Transmission Date: 20111010
  Serious: Yes (Other)
  Sender: FDA-Public Use
  Company Number: BR-PFIZER INC-2011112747

PATIENT
  Age: 38 Year
  Sex: Male
  Weight: 69 kg

DRUGS (2)
  1. SEROQUEL [Suspect]
     Dosage: UNK
  2. GEODON [Suspect]
     Indication: PANIC DISORDER
     Route: 048

REACTIONS (3)
  - WEIGHT INCREASED [None]
  - INCREASED APPETITE [None]
  - TREMOR [None]
